FAERS Safety Report 10418374 (Version 1)
Quarter: 2014Q3

REPORT INFORMATION
  Report Type: Spontaneous
  Country: US (occurrence: US)
  Receive Date: 20140829
  Receipt Date: 20140829
  Transmission Date: 20150326
  Serious: Yes (Other)
  Sender: FDA-Public Use
  Company Number: US-SA-2014SA117315

PATIENT

DRUGS (5)
  1. CLOFAZIMINE [Concomitant]
     Active Substance: CLOFAZIMINE
  2. ETHAMBUTOL [Concomitant]
     Active Substance: ETHAMBUTOL HYDROCHLORIDE
  3. AMINOGLYCOSIDE ANTIBACTERIALS [Concomitant]
     Active Substance: UNSPECIFIED INGREDIENT
  4. CLARITHROMYCIN. [Suspect]
     Active Substance: CLARITHROMYCIN
     Indication: MYCOBACTERIAL INFECTION
     Route: 065
  5. RIFAMPICIN [Suspect]
     Active Substance: RIFAMPIN
     Indication: PRODUCT USED FOR UNKNOWN INDICATION
     Dosage: 450-600 MG
     Route: 048

REACTIONS (2)
  - Lupus-like syndrome [Recovered/Resolved]
  - Antinuclear antibody positive [Recovered/Resolved]
